FAERS Safety Report 7448382-0 (Version None)
Quarter: 2011Q2

REPORT INFORMATION
  Report Type: 
  Country: None (occurrence: None)
  Receive Date: 20110429
  Receipt Date: 20100511
  Transmission Date: 20111010
  Serious: No
  Sender: FDA-Public Use
  Company Number: US-ASTRAZENECA-2010SE22097

PATIENT
  Age: 23407 Day
  Sex: Female

DRUGS (4)
  1. LIPITOR [Suspect]
  2. CRESTOR [Suspect]
     Route: 048
  3. NEXIUM [Suspect]
     Route: 048
  4. PRILOSEC [Suspect]
     Route: 048

REACTIONS (4)
  - CAROTID ARTERY STENOSIS [None]
  - MYALGIA [None]
  - DIVERTICULUM [None]
  - DRUG INEFFECTIVE [None]
